FAERS Safety Report 8357922-9 (Version None)
Quarter: 2012Q2

REPORT INFORMATION
  Report Type: 
  Country: None (occurrence: None)
  Receive Date: 20120514
  Receipt Date: 20120507
  Transmission Date: 20120825
  Serious: Yes (Other)
  Sender: FDA-Public Use
  Company Number: US-JNJFOC-20120507753

PATIENT
  Sex: Male
  Weight: 74.84 kg

DRUGS (8)
  1. CRESTOR [Concomitant]
     Indication: BLOOD CHOLESTEROL
     Route: 048
  2. ALFUZOSIN HCL [Concomitant]
     Indication: PROSTATIC DISORDER
     Route: 048
  3. ENABLEX [Concomitant]
     Indication: PROSTATIC DISORDER
     Route: 048
     Dates: start: 20120101
  4. XARELTO [Suspect]
     Indication: ATRIAL FIBRILLATION
     Route: 048
     Dates: start: 20120401
  5. M.V.I. [Concomitant]
     Indication: MEDICAL DIET
     Route: 048
  6. ASCORBIC ACID [Concomitant]
     Route: 048
  7. FISH OIL [Concomitant]
     Route: 048
  8. FINASTERIDE [Concomitant]
     Indication: PROSTATIC DISORDER

REACTIONS (2)
  - RASH ERYTHEMATOUS [None]
  - BLISTER [None]
